FAERS Safety Report 11230233 (Version 1)
Quarter: 2015Q2

REPORT INFORMATION
  Report Type: Spontaneous
  Country: US (occurrence: None)
  Receive Date: 20150629
  Receipt Date: 20150629
  Transmission Date: 20150821
  Serious: No
  Sender: FDA-Public Use
  Company Number: None

PATIENT
  Age: 62 Year
  Sex: Female

DRUGS (1)
  1. FARYDAK [Suspect]
     Active Substance: PANOBINOSTAT
     Indication: PLASMA CELL MYELOMA
     Dosage: 1 CAPSULE, MON, WED, FRIDAY
     Route: 048
     Dates: start: 20150325, end: 20150623

REACTIONS (1)
  - Fluid retention [None]

NARRATIVE: CASE EVENT DATE: 20150611
